FAERS Safety Report 7541959-3 (Version None)
Quarter: 2011Q2

REPORT INFORMATION
  Report Type: 
  Country: None (occurrence: None)
  Receive Date: 20110613
  Receipt Date: 20110603
  Transmission Date: 20111010
  Serious: Yes (Other)
  Sender: FDA-Public Use
  Company Number: US-AMGEN-USASP2011028904

PATIENT
  Age: 65 Year
  Sex: Female

DRUGS (1)
  1. ENBREL [Suspect]
     Indication: RHEUMATOID ARTHRITIS
     Dosage: 50 MG, QWK
     Dates: start: 20080530

REACTIONS (12)
  - OPEN WOUND [None]
  - RENAL PAIN [None]
  - THERMAL BURN [None]
  - FEELING ABNORMAL [None]
  - DIZZINESS [None]
  - PYREXIA [None]
  - HEPATIC PAIN [None]
  - HAEMORRHOIDS [None]
  - ABDOMINAL PAIN [None]
  - HEADACHE [None]
  - LACERATION [None]
  - ANORECTAL DISORDER [None]
